FAERS Safety Report 6979048-9 (Version None)
Quarter: 2010Q3

REPORT INFORMATION
  Report Type: 
  Country: None (occurrence: None)
  Receive Date: 20100913
  Receipt Date: 20100909
  Transmission Date: 20110219
  Serious: Yes (Other)
  Sender: FDA-Public Use
  Company Number: US-CEPHALON-2010004681

PATIENT
  Sex: Male
  Weight: 74 kg

DRUGS (6)
  1. TREANDA [Suspect]
     Indication: CHRONIC LYMPHOCYTIC LEUKAEMIA
     Route: 042
     Dates: start: 20100330, end: 20100331
  2. TREANDA [Suspect]
     Route: 042
     Dates: start: 20100427, end: 20100428
  3. TREANDA [Suspect]
     Route: 042
     Dates: start: 20100525, end: 20100526
  4. TREANDA [Suspect]
     Route: 042
     Dates: start: 20100622, end: 20100623
  5. TREANDA [Suspect]
     Route: 042
     Dates: start: 20100720, end: 20100721
  6. LEVOTHYROXINE SODIUM [Concomitant]
     Indication: HYPOTHYROIDISM

REACTIONS (1)
  - MULTIPLE MYELOMA [None]
